FAERS Safety Report 9512875 (Version 1)
Quarter: 2013Q1

REPORT INFORMATION
  Report Type: Spontaneous
  Country: US (occurrence: None)
  Receive Date: 20130305
  Receipt Date: 20130305
  Transmission Date: 20140127
  Serious: Yes (Hospitalization, Other)
  Sender: FDA-Public Use
  Company Number: 163-21880-12043227

PATIENT
  Age: 49 Year
  Sex: Male
  Weight: 90.72 kg

DRUGS (7)
  1. REVLIMID (LENALIDOMIDE) (15 MILLIGRAM, CAPSULES) [Suspect]
     Indication: PLASMA CELL MYELOMA
     Dosage: QD FOR 21 DAYS
     Route: 048
     Dates: start: 20111202
  2. ACYCLOVIR (ACICLOVIR) (ACICLOVIR) [Concomitant]
  3. ASPIRIN [Concomitant]
  4. LEXAPRO (ESCITALPRAM OXATE) [Concomitant]
  5. METHADONE (METHADONE) [Concomitant]
  6. PHOSLO (CALCIUM ACETATE) [Concomitant]
  7. RAPAFLO (SILODOSIN) [Concomitant]

REACTIONS (4)
  - Chest discomfort [None]
  - Dyspnoea [None]
  - Oedema [None]
  - Rash [None]
